FAERS Safety Report 9065197 (Version 1)
Quarter: 2013Q1

REPORT INFORMATION
  Report Type: Spontaneous
  Country: DK (occurrence: GB)
  Receive Date: 20130130
  Receipt Date: 20130130
  Transmission Date: 20140127
  Serious: Yes (Death)
  Sender: FDA-Public Use
  Company Number: GB-FRI-1000042246

PATIENT
  Age: 45 Year
  Sex: Male

DRUGS (2)
  1. CITALOPRAM [Suspect]
     Route: 048
  2. FLUOXETINE [Suspect]
     Dosage: 20 MG DAILY
     Route: 048

REACTIONS (1)
  - Completed suicide [Fatal]
